FAERS Safety Report 12706625 (Version 2)
Quarter: 2016Q3

REPORT INFORMATION
  Report Type: Spontaneous
  Country: ES (occurrence: ES)
  Receive Date: 20160901
  Receipt Date: 20160929
  Transmission Date: 20161109
  Serious: Yes (Hospitalization)
  Sender: FDA-Public Use
  Company Number: ES-ASTRAZENECA-2016SE92179

PATIENT
  Sex: Female

DRUGS (1)
  1. RILAST FORTE TBH [Suspect]
     Active Substance: BUDESONIDE\FORMOTEROL FUMARATE
     Dosage: 320MCG/9MCG
     Route: 055

REACTIONS (4)
  - Dyspnoea [Recovered/Resolved]
  - Throat irritation [Unknown]
  - Device defective [Unknown]
  - Drug ineffective [Recovered/Resolved]
